FAERS Safety Report 9803493 (Version 2)
Quarter: 2014Q1

REPORT INFORMATION
  Report Type: Spontaneous
  Country: AU (occurrence: None)
  Receive Date: 20140103
  Receipt Date: 20140130
  Transmission Date: 20141002
  Serious: Yes (Hospitalization)
  Sender: FDA-Public Use
  Company Number: SOTA20130008

PATIENT
  Age: 73 Year
  Sex: Male
  Weight: 80 kg

DRUGS (1)
  1. SOTALOL HYDROCHLORIDE [Suspect]
     Indication: ATRIAL FLUTTER
     Dosage: 80MG ONE DOSE ORAL
     Route: 048

REACTIONS (6)
  - Cardiogenic shock [None]
  - Left ventricular dysfunction [None]
  - Electrocardiogram QT prolonged [None]
  - Electrocardiogram T wave inversion [None]
  - No therapeutic response [None]
  - Cardiomyopathy [None]
